FAERS Safety Report 14928301 (Version 1)
Quarter: 2018Q2

REPORT INFORMATION
  Report Type: Spontaneous
  Country: DE (occurrence: DE)
  Receive Date: 20180523
  Receipt Date: 20180523
  Transmission Date: 20180711
  Serious: Yes (Congenital Anomaly)
  Sender: FDA-Public Use
  Company Number: DE-AUROBINDO-AUR-APL-2018-027020

PATIENT
  Sex: Male
  Weight: 4.14 kg

DRUGS (2)
  1. FEMIBION                           /01597501/ [Concomitant]
     Active Substance: CALCIUM PHOSPHATE, DIBASIC, ANHYDROUS\FERROUS SUCCINATE\MAGNESIUM HYDROXIDE
     Indication: PROPHYLAXIS OF NEURAL TUBE DEFECT
     Dosage: UNK
     Route: 064
  2. PAROXETINE. [Suspect]
     Active Substance: PAROXETINE
     Indication: OBSESSIVE THOUGHTS
     Dosage: 30 [MG/D ]/ INITIAL 30MG/D, DOSAGE REDUCED TO 15MG/D
     Route: 064
     Dates: start: 20170311, end: 20171225

REACTIONS (1)
  - Ventricular septal defect [Recovering/Resolving]
